FAERS Safety Report 6618049-7 (Version None)
Quarter: 2010Q1

REPORT INFORMATION
  Report Type: 
  Country: None (occurrence: None)
  Receive Date: 20100308
  Receipt Date: 20100304
  Transmission Date: 20100710
  Serious: Yes (Death)
  Sender: FDA-Public Use
  Company Number: US-SANOFI-AVENTIS-2010SA012679

PATIENT
  Sex: Male

DRUGS (8)
  1. MULTAQ [Suspect]
     Route: 048
     Dates: start: 20100222
  2. WARFARIN SODIUM [Concomitant]
  3. LOVAZA [Concomitant]
  4. LASIX [Concomitant]
  5. COENZYME Q10 [Concomitant]
  6. ASPIRIN [Concomitant]
  7. METOPROLOL TARTRATE [Concomitant]
  8. VITAMIN C [Concomitant]

REACTIONS (1)
  - CEREBRAL HAEMORRHAGE [None]
